FAERS Safety Report 13284538 (Version 3)
Quarter: 2017Q2

REPORT INFORMATION
  Report Type: Spontaneous
  Country: AR (occurrence: AR)
  Receive Date: 20170301
  Receipt Date: 20170510
  Transmission Date: 20170830
  Serious: Yes (Hospitalization, Other)
  Sender: FDA-Public Use
  Company Number: AR-ALEXION PHARMACEUTICALS INC.-A201609299

PATIENT
  Age: 42 Year
  Sex: Female
  Weight: 52 kg

DRUGS (5)
  1. SOLIRIS [Suspect]
     Active Substance: ECULIZUMAB
     Dosage: 1200 MG, Q2W
     Route: 042
  2. SOLIRIS [Suspect]
     Active Substance: ECULIZUMAB
     Indication: HAEMOLYTIC URAEMIC SYNDROME
     Dosage: 900 MG, QW (FOR 4 WEEKS)
     Route: 042
     Dates: start: 20160811, end: 20160908
  3. SOLIRIS [Suspect]
     Active Substance: ECULIZUMAB
     Dosage: 1200 MG, Q2W
     Route: 042
     Dates: start: 20160909, end: 20161027
  4. HAEMOPHILUS INFLUENZAE TYPE B [Concomitant]
     Active Substance: HAEMOPHILUS INFLUENZAE TYPE B
     Indication: PRODUCT USED FOR UNKNOWN INDICATION
     Dosage: UNK
     Route: 065
  5. CALCIPARINE [Concomitant]
     Active Substance: HEPARIN CALCIUM
     Indication: PRODUCT USED FOR UNKNOWN INDICATION
     Dosage: .25 MG, BID
     Route: 065
     Dates: start: 201606

REACTIONS (35)
  - Red blood cell count decreased [Unknown]
  - Eosinophilia [Recovering/Resolving]
  - C-reactive protein increased [Unknown]
  - Platelet count increased [Unknown]
  - Haematocrit decreased [Unknown]
  - Hypersensitivity [Unknown]
  - Eosinophilia [Recovered/Resolved]
  - Anisocytosis [Not Recovered/Not Resolved]
  - Blood glucose increased [Unknown]
  - Polyuria [Recovered/Resolved]
  - Pyrexia [Recovered/Resolved]
  - Complement factor C3 decreased [Recovered/Resolved]
  - Neutrophil count increased [Unknown]
  - Eosinophil count decreased [Unknown]
  - Blood phosphorus increased [Unknown]
  - Diarrhoea [Unknown]
  - Thrombotic microangiopathy [Unknown]
  - Anisochromia [Not Recovered/Not Resolved]
  - Polyuria [Unknown]
  - Poikilocytosis [Unknown]
  - White blood cell count decreased [Unknown]
  - Blood urea increased [Unknown]
  - Blood creatinine increased [Unknown]
  - Oliguria [Unknown]
  - Influenza [Recovered/Resolved]
  - Haemoglobin decreased [Unknown]
  - Haemoglobin urine present [Unknown]
  - Blood immunoglobulin E increased [Unknown]
  - Proteinuria [Unknown]
  - Red blood cell sedimentation rate increased [Unknown]
  - Blood lactate dehydrogenase decreased [Unknown]
  - Hypochromasia [Unknown]
  - Blood calcium decreased [Unknown]
  - Complement factor C4 decreased [Unknown]
  - Blood triglycerides increased [Unknown]

NARRATIVE: CASE EVENT DATE: 20160929
